FAERS Safety Report 8221165-X (Version None)
Quarter: 2012Q1

REPORT INFORMATION
  Report Type: 
  Country: None (occurrence: None)
  Receive Date: 20120320
  Receipt Date: 20120312
  Transmission Date: 20120608
  Serious: Yes (Other)
  Sender: FDA-Public Use
  Company Number: JP-JNJFOC-20120307561

PATIENT
  Sex: Male
  Weight: 78 kg

DRUGS (15)
  1. CODEINE PHOSPHATE [Suspect]
     Route: 048
     Dates: start: 20110621, end: 20110627
  2. CODEINE PHOSPHATE [Suspect]
     Indication: PAIN
     Route: 048
     Dates: start: 20110614, end: 20110620
  3. OMEPRAZOLE [Concomitant]
     Route: 048
     Dates: start: 20110322, end: 20110816
  4. FENTANYL-100 [Suspect]
     Indication: PAIN
     Route: 062
     Dates: start: 20110614, end: 20110720
  5. PAXIL [Suspect]
     Indication: PAIN
     Route: 048
  6. DEPAS [Suspect]
     Indication: PAIN
     Route: 048
  7. ANAFRANIL [Suspect]
     Indication: PAIN
     Route: 048
     Dates: start: 20110414, end: 20110714
  8. MEXITIL [Concomitant]
     Indication: PAIN
     Route: 048
     Dates: end: 20111129
  9. CODEINE PHOSPHATE [Suspect]
     Route: 048
     Dates: start: 20110628, end: 20110704
  10. CELECOXIB [Concomitant]
     Indication: PAIN
     Route: 048
     Dates: start: 20101028, end: 20110621
  11. SILECE [Suspect]
     Indication: PAIN
     Route: 048
  12. TETRAMIDE [Suspect]
     Indication: PAIN
     Route: 048
     Dates: start: 20110704
  13. CODEINE PHOSPHATE [Suspect]
     Route: 048
     Dates: start: 20090901
  14. PRIMPERAN TAB [Concomitant]
     Route: 048
     Dates: start: 20110507
  15. BISOPROLOL FUMARATE [Concomitant]
     Route: 048
     Dates: start: 20110531, end: 20110830

REACTIONS (2)
  - ROAD TRAFFIC ACCIDENT [None]
  - SOMNOLENCE [None]
